FAERS Safety Report 19807085 (Version 1)
Quarter: 2021Q3

REPORT INFORMATION
  Report Type: Spontaneous
  Country: US (occurrence: US)
  Receive Date: 20210908
  Receipt Date: 20210908
  Transmission Date: 20211014
  Serious: Yes (Other)
  Sender: FDA-Public Use
  Company Number: US-ROCHE-2903489

PATIENT
  Age: 53 Year
  Sex: Female
  Weight: 73.4 kg

DRUGS (1)
  1. ACTEMRA [Suspect]
     Active Substance: TOCILIZUMAB
     Indication: COVID-19
     Route: 065
     Dates: start: 20210810

REACTIONS (4)
  - Aspartate aminotransferase increased [Unknown]
  - Off label use [Unknown]
  - Hypoxia [Unknown]
  - Alanine aminotransferase increased [Unknown]
